FAERS Safety Report 7935453-5 (Version None)
Quarter: 2011Q4

REPORT INFORMATION
  Report Type: 
  Country: None (occurrence: None)
  Receive Date: 20111122
  Receipt Date: 20111109
  Transmission Date: 20120403
  Serious: Yes (Life-Threatening, Hospitalization)
  Sender: FDA-Public Use
  Company Number: AT-ROCHE-1011451

PATIENT
  Age: 63 Year
  Sex: Male
  Weight: 75 kg

DRUGS (3)
  1. RADIOTHERAPY [Concomitant]
  2. XELODA [Suspect]
     Indication: RECTAL CANCER
  3. FLUOROURACIL [Concomitant]

REACTIONS (2)
  - ABSCESS [None]
  - ANASTOMOTIC COMPLICATION [None]
